FAERS Safety Report 12639204 (Version 1)
Quarter: 2016Q3

REPORT INFORMATION
  Report Type: Report from Study
  Country: CA (occurrence: CA)
  Receive Date: 20160810
  Receipt Date: 20160810
  Transmission Date: 20161109
  Serious: Yes (Other)
  Sender: FDA-Public Use
  Company Number: CA-AMGEN-CANSL2016101510

PATIENT
  Age: 77 Year
  Sex: Female

DRUGS (1)
  1. PROLIA [Suspect]
     Active Substance: DENOSUMAB
     Indication: PRODUCT USED FOR UNKNOWN INDICATION
     Dosage: UNK
     Route: 065
     Dates: start: 20150709

REACTIONS (7)
  - Kidney enlargement [Unknown]
  - Diabetes mellitus [Unknown]
  - Pain in extremity [Unknown]
  - Exostosis [Unknown]
  - Myalgia [Unknown]
  - Gait disturbance [Unknown]
  - Mass [Unknown]
